FAERS Safety Report 8817546 (Version 1)
Quarter: 2012Q4

REPORT INFORMATION
  Report Type: 
  Country: CN (occurrence: CN)
  Receive Date: 20121004
  Receipt Date: 20121004
  Transmission Date: 20130627
  Serious: Yes (Other)
  Sender: FDA-Public Use
  Company Number: PHHY2012CN085029

PATIENT

DRUGS (7)
  1. CICLOSPORIN [Suspect]
     Indication: STEM CELL TRANSPLANT
     Dosage: 1.25 mg/kg, Q12H
     Route: 042
  2. CICLOSPORIN [Suspect]
     Indication: PROPHYLAXIS AGAINST GRAFT VERSUS HOST DISEASE
  3. MYCOPHENOLATE MOFETIL [Concomitant]
     Indication: PROPHYLAXIS AGAINST GRAFT VERSUS HOST DISEASE
     Dosage: 0.5 g, BID
     Route: 048
  4. METHOTREXATE [Concomitant]
     Indication: PROPHYLAXIS AGAINST GRAFT VERSUS HOST DISEASE
     Dosage: 15 mg/m2, UNK
     Route: 042
  5. METHOTREXATE [Concomitant]
     Dosage: 10 mg/m2, UNK
     Route: 042
  6. BUSULFAN [Concomitant]
  7. CYCLOPHOSPHAMIDE [Concomitant]

REACTIONS (1)
  - Hepatic vein occlusion [Recovering/Resolving]
